FAERS Safety Report 7433468-7 (Version None)
Quarter: 2011Q2

REPORT INFORMATION
  Report Type: 
  Country: None (occurrence: None)
  Receive Date: 20110422
  Receipt Date: 20110419
  Transmission Date: 20111010
  Serious: Yes (Other)
  Sender: FDA-Public Use
  Company Number: US-ABBOTT-11P-163-0720458-00

PATIENT
  Sex: Female
  Weight: 95.34 kg

DRUGS (3)
  1. UNKNOWN INSULIN [Concomitant]
     Indication: TYPE 2 DIABETES MELLITUS
  2. OXYGEN [Concomitant]
     Indication: SLEEP APNOEA SYNDROME
     Dosage: CPAP MACHINE
  3. HUMIRA [Suspect]
     Indication: RHEUMATOID ARTHRITIS
     Dates: start: 20080101

REACTIONS (8)
  - DYSARTHRIA [None]
  - BACK PAIN [None]
  - CACHEXIA [None]
  - SQUAMOUS CELL CARCINOMA [None]
  - PARAESTHESIA [None]
  - MALAISE [None]
  - WEIGHT DECREASED [None]
  - CEREBROVASCULAR ACCIDENT [None]
